FAERS Safety Report 21747232 (Version 1)
Quarter: 2022Q4

REPORT INFORMATION
  Report Type: Spontaneous
  Country: PT (occurrence: PT)
  Receive Date: 20221219
  Receipt Date: 20221219
  Transmission Date: 20230113
  Serious: Yes (Other)
  Sender: FDA-Public Use
  Company Number: PT-AUROBINDO-AUR-APL-2022-053241

PATIENT
  Age: 58 Year
  Sex: Female

DRUGS (4)
  1. BISOPROLOL [Suspect]
     Active Substance: BISOPROLOL
     Indication: Aortic valve incompetence
     Dosage: UNK
     Route: 065
  2. ACETYLCHOLINE CHLORIDE [Concomitant]
     Active Substance: ACETYLCHOLINE CHLORIDE
     Indication: Drug provocation test
     Dosage: UNK
     Route: 065
  3. PREDNISONE [Concomitant]
     Active Substance: PREDNISONE
     Indication: Product used for unknown indication
     Dosage: UNK
     Route: 065
  4. FLECAINIDE [Concomitant]
     Active Substance: FLECAINIDE
     Indication: Product used for unknown indication
     Dosage: UNK
     Route: 065

REACTIONS (3)
  - Arteriospasm coronary [Unknown]
  - Acute myocardial infarction [Unknown]
  - Cardiac failure acute [Unknown]
